FAERS Safety Report 6164014-6 (Version None)
Quarter: 2009Q2

REPORT INFORMATION
  Report Type: 
  Country: None (occurrence: None)
  Receive Date: 20090420
  Receipt Date: 20090408
  Transmission Date: 20091009
  Serious: Yes (Death, Hospitalization, Other)
  Sender: FDA-Public Use
  Company Number: 2009-01434

PATIENT
  Age: 72 Year
  Sex: Female
  Weight: 44 kg

DRUGS (5)
  1. VELCADE [Suspect]
     Indication: MULTIPLE MYELOMA
     Dosage: SEE IMAGE
     Route: 042
     Dates: start: 20080910, end: 20090113
  2. VELCADE [Suspect]
     Indication: MULTIPLE MYELOMA
     Dosage: SEE IMAGE
     Route: 042
     Dates: start: 20080813
  3. DEXAMETHASONE 4MG TAB [Concomitant]
  4. VALTREX [Concomitant]
  5. SULFAMETHOXAZOLE AND TRIMETHOPRIM [Concomitant]

REACTIONS (26)
  - ANOREXIA [None]
  - ARTHRALGIA [None]
  - ASCITES [None]
  - BACK PAIN [None]
  - BONE MARROW FAILURE [None]
  - CARDIO-RESPIRATORY ARREST [None]
  - CONDITION AGGRAVATED [None]
  - CONSTIPATION [None]
  - CONVULSION [None]
  - GENERAL PHYSICAL HEALTH DETERIORATION [None]
  - HEART RATE DECREASED [None]
  - HYPERGLYCAEMIA [None]
  - HYPOTENSION [None]
  - MALAISE [None]
  - MALIGNANT NEOPLASM PROGRESSION [None]
  - MASS [None]
  - MULTIPLE MYELOMA [None]
  - NAUSEA [None]
  - NO THERAPEUTIC RESPONSE [None]
  - PLEURAL DISORDER [None]
  - PLEURAL EFFUSION [None]
  - SOFT TISSUE DISORDER [None]
  - STOMATITIS [None]
  - THROMBOCYTOPENIA [None]
  - TOOTH EXTRACTION [None]
  - TUMOUR LYSIS SYNDROME [None]
